FAERS Safety Report 9393398 (Version 7)
Quarter: 2013Q3

REPORT INFORMATION
  Report Type: Report from Study
  Country: US (occurrence: US)
  Receive Date: 20130710
  Receipt Date: 20130917
  Transmission Date: 20140515
  Serious: Yes (Other)
  Sender: FDA-Public Use
  Company Number: PHEH2013US014407

PATIENT
  Age: 55 Year
  Sex: Female
  Weight: 77.98 kg

DRUGS (12)
  1. GILENYA [Suspect]
     Indication: MULTIPLE SCLEROSIS
     Dosage: 0.5 MG, QD
     Route: 048
     Dates: start: 201301, end: 201307
  2. GILENYA [Suspect]
     Route: 048
  3. FLUVOXAMINE [Concomitant]
  4. CYMBALTA [Concomitant]
     Indication: DEPRESSION
     Dosage: 60 MG, BID
     Route: 048
  5. KEPPRA [Concomitant]
     Indication: CONVULSION
     Dosage: 750 MG, BID
     Route: 048
  6. ADDERALL [Concomitant]
     Indication: SOMNOLENCE
  7. DONEPEZIL HCL [Concomitant]
     Dosage: 10 MG, UNK
     Route: 048
  8. MORPHINE SULFATE [Concomitant]
     Dosage: 100 MG, PRN
  9. SIMVASTATIN [Concomitant]
     Dosage: 40 MG, QD
     Route: 048
  10. MULTI-VIT [Concomitant]
     Dosage: 1 DF, QD
     Route: 048
  11. CALCIUM CARBONATE W/VITAMIN D [Concomitant]
     Dosage: 1 DF, QD
     Route: 048
  12. RITALINA LA [Concomitant]
     Indication: FATIGUE
     Dosage: 30 MG, UNK

REACTIONS (11)
  - Obsessive-compulsive disorder [Recovered/Resolved]
  - Partial seizures with secondary generalisation [Unknown]
  - Grand mal convulsion [Recovered/Resolved]
  - Postictal state [Unknown]
  - Somnolence [Unknown]
  - Loss of consciousness [Unknown]
  - Muscle rigidity [Unknown]
  - Flushing [Recovered/Resolved]
  - Memory impairment [Recovered/Resolved]
  - Feeling hot [Recovered/Resolved]
  - Feeling abnormal [Recovered/Resolved]
